FAERS Safety Report 4526259-8 (Version None)
Quarter: 2004Q4

REPORT INFORMATION
  Report Type: 
  Country: None (occurrence: None)
  Receive Date: 20041210
  Receipt Date: 20041130
  Transmission Date: 20050328
  Serious: Yes (Hospitalization)
  Sender: FDA-Public Use
  Company Number: 2004SE06679

PATIENT
  Age: 58 Year
  Sex: Male

DRUGS (8)
  1. SEROQUEL [Suspect]
     Indication: SCHIZOPHRENIA
     Dosage: 125 MG BID; PO
     Route: 048
     Dates: end: 20040915
  2. LEPONEX [Concomitant]
  3. HYDREX SEMI [Concomitant]
  4. HEKSAVIT [Concomitant]
  5. MINIFOM [Concomitant]
  6. MOVICOL [Concomitant]
  7. TEMESTA [Concomitant]
  8. TENOX [Concomitant]

REACTIONS (1)
  - WHITE BLOOD CELL COUNT DECREASED [None]
